FAERS Safety Report 16379325 (Version 1)
Quarter: 2019Q2

REPORT INFORMATION
  Report Type: Report from Study
  Country: US (occurrence: US)
  Receive Date: 20190531
  Receipt Date: 20190531
  Transmission Date: 20190711
  Serious: Yes (Hospitalization)
  Sender: FDA-Public Use
  Company Number: US-ACTELION-A-NJ2019-190954

PATIENT
  Age: 90 Year
  Sex: Female

DRUGS (1)
  1. OPSUMIT [Suspect]
     Active Substance: MACITENTAN
     Indication: PULMONARY HYPERTENSION
     Dosage: 10 MG, QD
     Route: 048
     Dates: start: 20190215, end: 20190408

REACTIONS (5)
  - Brain natriuretic peptide increased [Unknown]
  - Dyspnoea [Unknown]
  - Pneumonia [Unknown]
  - Fluid overload [Unknown]
  - Oedema [Unknown]

NARRATIVE: CASE EVENT DATE: 20190408
